FAERS Safety Report 23839363 (Version 2)
Quarter: 2024Q2

REPORT INFORMATION
  Report Type: Spontaneous
  Country: US (occurrence: US)
  Receive Date: 20240509
  Receipt Date: 20240512
  Transmission Date: 20240716
  Serious: No
  Sender: FDA-Public Use
  Company Number: US-ELI_LILLY_AND_COMPANY-US202405005304

PATIENT
  Age: 31 Year
  Sex: Female

DRUGS (2)
  1. REYVOW [Suspect]
     Active Substance: LASMIDITAN
     Indication: Migraine
     Dosage: 50 MG, UNKNOWN
     Route: 048
  2. REYVOW [Suspect]
     Active Substance: LASMIDITAN
     Indication: Migraine with aura
     Dosage: 100 MG, UNKNOWN
     Route: 048

REACTIONS (1)
  - Off label use [Unknown]
